FAERS Safety Report 7271729-5 (Version None)
Quarter: 2011Q1

REPORT INFORMATION
  Report Type: 
  Country: None (occurrence: None)
  Receive Date: 20110131
  Receipt Date: 20110131
  Transmission Date: 20110831
  Serious: Yes (Hospitalization)
  Sender: FDA-Public Use
  Company Number: None

PATIENT
  Sex: Female
  Weight: 85 kg

DRUGS (4)
  1. MERCAPTOPURINE [Suspect]
     Dosage: 3259.2 MCG
  2. CYTARABINE [Suspect]
     Dosage: 2328 MG
  3. VINCRISTINE SULFATE [Suspect]
     Dosage: 6 MG
  4. CYCLOPHOSPHAMIDE 3880 MG [Suspect]
     Dosage: 3880 MG

REACTIONS (1)
  - FEBRILE NEUTROPENIA [None]
